FAERS Safety Report 5742443-X (Version None)
Quarter: 2008Q2

REPORT INFORMATION
  Report Type: 
  Country: None (occurrence: None)
  Receive Date: 20080515
  Receipt Date: 20080425
  Transmission Date: 20081010
  Serious: Yes (Hospitalization)
  Sender: FDA-Public Use
  Company Number: 2008PV000025

PATIENT
  Age: 72 Year
  Sex: Female
  Weight: 68 kg

DRUGS (9)
  1. DEPOCYT [Suspect]
     Dosage: 50 MG; X4; INTH
     Route: 037
     Dates: start: 20070314
  2. DEXAMETHASONE TAB [Concomitant]
  3. VINCRISTINE [Concomitant]
  4. METHOTREXATE SODIUM [Concomitant]
  5. IFOSFAMIDE [Concomitant]
  6. METOPROLOL TARTRATE [Concomitant]
  7. PANTOPRAZOLE [Concomitant]
  8. SODIUM CHLORIDE [Concomitant]
  9. ZOPICLONE [Concomitant]

REACTIONS (2)
  - NEUROGENIC BLADDER [None]
  - PARESIS ANAL SPHINCTER [None]
